FAERS Safety Report 8486209-9 (Version None)
Quarter: 2012Q3

REPORT INFORMATION
  Report Type: 
  Country: None (occurrence: None)
  Receive Date: 20120703
  Receipt Date: 20120702
  Transmission Date: 20120928
  Serious: Yes (Death, Other)
  Sender: FDA-Public Use
  Company Number: US-ELI_LILLY_AND_COMPANY-US201202006136

PATIENT
  Age: 70 Year
  Sex: Male

DRUGS (3)
  1. HEPARIN [Concomitant]
  2. EFFIENT [Suspect]
     Indication: ACUTE MYOCARDIAL INFARCTION
     Dosage: 60 MG, LOADING
  3. EFFIENT [Suspect]
     Dosage: 10 MG, UNKNOWN

REACTIONS (2)
  - HAEMORRHAGE INTRACRANIAL [None]
  - DEATH [None]
